FAERS Safety Report 6628180-8 (Version None)
Quarter: 2010Q1

REPORT INFORMATION
  Report Type: 
  Country: None (occurrence: None)
  Receive Date: 20100311
  Receipt Date: 20091119
  Transmission Date: 20100710
  Serious: No
  Sender: FDA-Public Use
  Company Number: A0825043A

PATIENT
  Sex: Male

DRUGS (4)
  1. NICORETTE [Suspect]
     Indication: SMOKING CESSATION THERAPY
     Dosage: 1GUM TWENTY FOUR TIMES PER DAY
     Route: 002
  2. ORANGE JUICE [Suspect]
  3. NICODERM CQ [Suspect]
     Indication: SMOKING CESSATION THERAPY
     Dosage: 2PAT SINGLE DOSE
  4. NONE [Concomitant]

REACTIONS (2)
  - DIARRHOEA [None]
  - PALPITATIONS [None]
